FAERS Safety Report 10497544 (Version 3)
Quarter: 2014Q4

REPORT INFORMATION
  Report Type: Spontaneous
  Country: US (occurrence: None)
  Receive Date: 20141002
  Receipt Date: 20141128
  Transmission Date: 20150528
  Serious: Yes (Hospitalization, Other)
  Sender: FDA-Public Use
  Company Number: ADR-2014-01791

PATIENT
  Age: 23 Year
  Sex: Male

DRUGS (8)
  1. GABAPENTIN. [Suspect]
     Active Substance: GABAPENTIN
  2. ZONISAMIDE. [Suspect]
     Active Substance: ZONISAMIDE
  3. ZOFRAN [Suspect]
     Active Substance: ONDANSETRON HYDROCHLORIDE
  4. BACLOFEN. [Suspect]
     Active Substance: BACLOFEN
     Indication: MUSCLE SPASTICITY
     Dosage: 1,100 MCG/DAY?GREATER THAN FIVE YEARS
     Route: 037
  5. CLONAZEPAM. [Suspect]
     Active Substance: CLONAZEPAM
  6. OXCARBAZEPINE. [Suspect]
     Active Substance: OXCARBAZEPINE
  7. SERTRALINE [Suspect]
     Active Substance: SERTRALINE HYDROCHLORIDE
  8. DIAZEPAM. [Suspect]
     Active Substance: DIAZEPAM

REACTIONS (6)
  - Blood pressure decreased [None]
  - Somnolence [None]
  - Blood glucose decreased [None]
  - Lethargy [None]
  - Diarrhoea [None]
  - Urinary tract infection [None]

NARRATIVE: CASE EVENT DATE: 20140916
